FAERS Safety Report 9525591 (Version 1)
Quarter: 2013Q1

REPORT INFORMATION
  Report Type: Spontaneous
  Country: US (occurrence: None)
  Receive Date: 20130305
  Receipt Date: 20130305
  Transmission Date: 20140127
  Serious: Yes (Hospitalization)
  Sender: FDA-Public Use
  Company Number: 163-21880-12023054

PATIENT
  Age: 67 Year
  Sex: Female

DRUGS (1)
  1. REVLIMID [Suspect]
     Indication: PLASMA CELL MYELOMA
     Dosage: ONCE DAILY, DAYS 1-21/ OFF 7 DAYS,
     Dates: start: 20120224

REACTIONS (3)
  - Respiratory tract infection [None]
  - Dyspnoea [None]
  - Chest pain [None]
